FAERS Safety Report 21720193 (Version 1)
Quarter: 2022Q4

REPORT INFORMATION
  Report Type: Spontaneous
  Country: US (occurrence: US)
  Receive Date: 20221213
  Receipt Date: 20221213
  Transmission Date: 20230113
  Serious: No
  Sender: FDA-Public Use
  Company Number: US-BIOVITRUM-2022US14492

PATIENT
  Sex: Male
  Weight: 11 kg

DRUGS (6)
  1. SYNAGIS [Suspect]
     Active Substance: PALIVIZUMAB
     Indication: Premature baby
  2. GRIPE WATER [SODIUM BICARBONATE] [Concomitant]
     Dosage: 2.5-2MG/ 5
  3. POLY-VI-SOL [VITAMINS NOS] [Concomitant]
     Dosage: 250-50/ML
  4. EPINEPHRINE [Concomitant]
     Active Substance: EPINEPHRINE
  5. ALBUTEROL SULFATE [Concomitant]
     Active Substance: ALBUTEROL SULFATE
  6. SYNAGIS [Suspect]
     Active Substance: PALIVIZUMAB
     Indication: Low birth weight baby

REACTIONS (1)
  - Respiratory tract infection [Not Recovered/Not Resolved]
